FAERS Safety Report 21169677 (Version 1)
Quarter: 2022Q3

REPORT INFORMATION
  Report Type: Spontaneous
  Country: US (occurrence: US)
  Receive Date: 20220804
  Receipt Date: 20220804
  Transmission Date: 20221026
  Serious: Yes (Other)
  Sender: FDA-Public Use
  Company Number: US-CHIESI-2021CHF05759

PATIENT

DRUGS (3)
  1. KENGREAL [Suspect]
     Active Substance: CANGRELOR
     Indication: Ischaemic stroke
     Dosage: 30 MICROGRAM/KILOGRAM, (1X)
     Route: 040
  2. KENGREAL [Suspect]
     Active Substance: CANGRELOR
     Indication: Stent placement
     Dosage: 4 UNK
     Route: 042
  3. KENGREAL [Suspect]
     Active Substance: CANGRELOR
     Indication: Off label use

REACTIONS (2)
  - Cerebral haemorrhage [Unknown]
  - Off label use [Unknown]
